FAERS Safety Report 15785872 (Version 1)
Quarter: 2019Q1

REPORT INFORMATION
  Report Type: Spontaneous
  Country: US (occurrence: US)
  Receive Date: 20190101
  Receipt Date: 20190101
  Transmission Date: 20190417
  Serious: Yes (Life-Threatening, Hospitalization, Disabling)
  Sender: FDA-Public Use
  Company Number: None

PATIENT
  Age: 39 Year
  Sex: Male
  Weight: 63.9 kg

DRUGS (3)
  1. GADOLINIUM DYE CONTRAST [Suspect]
     Active Substance: GADOLINIUM
     Indication: NUCLEAR MAGNETIC RESONANCE IMAGING
  2. GABAPENTIN. [Concomitant]
     Active Substance: GABAPENTIN
  3. BAYER BACK + BODY ADVIL ALEVE [Concomitant]

REACTIONS (20)
  - Procedural complication [None]
  - Urine abnormality [None]
  - Eye irritation [None]
  - Vomiting [None]
  - Feeling abnormal [None]
  - Pollakiuria [None]
  - Gadolinium deposition disease [None]
  - Bone pain [None]
  - Skin lesion [None]
  - Chromaturia [None]
  - Eye pruritus [None]
  - Alopecia [None]
  - Asthenia [None]
  - Pruritus generalised [None]
  - Loss of consciousness [None]
  - Fatigue [None]
  - Dysuria [None]
  - Fall [None]
  - Hyperhidrosis [None]
  - Seizure [None]

NARRATIVE: CASE EVENT DATE: 20140607
